FAERS Safety Report 11159471 (Version 5)
Quarter: 2015Q3

REPORT INFORMATION
  Report Type: Spontaneous
  Country: CO (occurrence: CO)
  Receive Date: 20150603
  Receipt Date: 20150709
  Transmission Date: 20151125
  Serious: Yes (Hospitalization, Other)
  Sender: FDA-Public Use
  Company Number: CO-BIOMARINAP-CO-2015-106520

PATIENT
  Age: 5 Year
  Sex: Female
  Weight: 14.5 kg

DRUGS (1)
  1. NAGLAZYME [Suspect]
     Active Substance: GALSULFASE
     Indication: MUCOPOLYSACCHARIDOSIS VI
     Dosage: 15 MG, QW
     Route: 042
     Dates: start: 20110824

REACTIONS (5)
  - Cerebral infarction [Unknown]
  - Endocarditis bacterial [Not Recovered/Not Resolved]
  - Hemiplegia [Unknown]
  - Septic embolus [Unknown]
  - Splenic infarction [Unknown]

NARRATIVE: CASE EVENT DATE: 20150529
